FAERS Safety Report 18435091 (Version 1)
Quarter: 2020Q4

REPORT INFORMATION
  Report Type: Report from Study
  Country: MX (occurrence: MX)
  Receive Date: 20201028
  Receipt Date: 20201028
  Transmission Date: 20210114
  Serious: Yes (Other)
  Sender: FDA-Public Use
  Company Number: NVSC2020MX286569

PATIENT
  Sex: Female
  Weight: 45 kg

DRUGS (1)
  1. GALVUS MET [Suspect]
     Active Substance: METFORMIN HYDROCHLORIDE\VILDAGLIPTIN
     Indication: BLOOD GLUCOSE INCREASED
     Dosage: 1 DF, QD
     Route: 048
     Dates: start: 202004

REACTIONS (3)
  - Fall [Unknown]
  - Paralysis [Unknown]
  - Blood glucose abnormal [Unknown]
